FAERS Safety Report 5165226-0 (Version None)
Quarter: 2006Q4

REPORT INFORMATION
  Report Type: 
  Country: None (occurrence: None)
  Receive Date: 20061124
  Receipt Date: 20061113
  Transmission Date: 20070319
  Serious: Yes (Other)
  Sender: FDA-Public Use
  Company Number: 2006140599

PATIENT

DRUGS (1)
  1. CELEBREX [Suspect]
     Dosage: 400 MG (200 MG, 2 IN 1 D)

REACTIONS (1)
  - CEREBROVASCULAR DISORDER [None]
